FAERS Safety Report 10213319 (Version 1)
Quarter: 2014Q2

REPORT INFORMATION
  Report Type: Spontaneous
  Country: IT (occurrence: None)
  Receive Date: 20140529
  Receipt Date: 20140529
  Transmission Date: 20141212
  Serious: Yes (Hospitalization)
  Sender: FDA-Public Use
  Company Number: SYM-2014-20745

PATIENT
  Age: 57 Year
  Sex: Female

DRUGS (7)
  1. ACYCLOVIR [Suspect]
     Indication: BLEPHARITIS
     Dosage: 5 UNIT/DAY, OPHTHALMIC
     Route: 047
     Dates: start: 20100314, end: 20100326
  2. ACYCLOVIR [Suspect]
     Indication: HERPES ZOSTER
     Dosage: 5 UNIT/DAY, OPHTHALMIC
     Route: 047
     Dates: start: 20100314, end: 20100326
  3. FAMVIR [Suspect]
     Indication: BLEPHARITIS
     Route: 048
     Dates: start: 20100314, end: 20100326
  4. FAMVIR [Suspect]
     Indication: HERPES ZOSTER
     Route: 048
     Dates: start: 20100314, end: 20100326
  5. AULIN [Suspect]
     Indication: DERMATITIS
     Route: 048
     Dates: start: 20100325, end: 20100326
  6. AULIN [Suspect]
     Indication: HERPES ZOSTER
     Route: 048
     Dates: start: 20100325, end: 20100326
  7. BISOPROLOL (BISOPROLOL) [Concomitant]

REACTIONS (4)
  - Urticaria [None]
  - Pruritus [None]
  - Dizziness [None]
  - Abdominal pain upper [None]
